FAERS Safety Report 14083172 (Version 1)
Quarter: 2017Q4

REPORT INFORMATION
  Report Type: Spontaneous
  Country: US (occurrence: None)
  Receive Date: 20171013
  Receipt Date: 20171013
  Transmission Date: 20180321
  Serious: Yes (Other)
  Sender: FDA-Public Use
  Company Number: None

PATIENT
  Age: 53 Year
  Sex: Female
  Weight: 47.63 kg

DRUGS (1)
  1. TYMLOS [Suspect]
     Active Substance: ABALOPARATIDE
     Indication: OSTEOPOROSIS
     Dates: start: 2017

REACTIONS (6)
  - Hair texture abnormal [None]
  - Abdominal pain upper [None]
  - Impaired work ability [None]
  - Diarrhoea [None]
  - Dry skin [None]
  - Skin texture abnormal [None]
